FAERS Safety Report 4987036-7 (Version None)
Quarter: 2006Q2

REPORT INFORMATION
  Report Type: 
  Country: None (occurrence: None)
  Receive Date: 20060501
  Receipt Date: 20060421
  Transmission Date: 20061013
  Serious: Yes (Hospitalization)
  Sender: FDA-Public Use
  Company Number: PHNU2006DE01734

PATIENT
  Sex: Male

DRUGS (3)
  1. DIMENHYDRINATE [Concomitant]
  2. ANALGESICS [Concomitant]
  3. VOLTAREN [Suspect]
     Indication: BACK PAIN
     Dosage: 3INJECTIONS OVER 3 DAYS

REACTIONS (4)
  - ARTIFICIAL ANUS [None]
  - DIALYSIS [None]
  - ILEUS [None]
  - RENAL FAILURE ACUTE [None]
